FAERS Safety Report 17991789 (Version 3)
Quarter: 2020Q3

REPORT INFORMATION
  Report Type: Spontaneous
  Country: US (occurrence: US)
  Receive Date: 20200707
  Receipt Date: 20200810
  Transmission Date: 20201103
  Serious: Yes (Hospitalization, Other)
  Sender: FDA-Public Use
  Company Number: US-ACTELION-A-NJ2020-206711

PATIENT
  Age: 18 Year
  Sex: Female

DRUGS (7)
  1. TYLENOL [Concomitant]
     Active Substance: ACETAMINOPHEN
     Dosage: UNK, PRN
  2. DIGOXIN. [Concomitant]
     Active Substance: DIGOXIN
     Indication: TACHYCARDIA
     Dosage: 125 MCG, QD
     Route: 048
     Dates: start: 20091103
  3. TYVASO [Concomitant]
     Active Substance: TREPROSTINIL
     Dosage: 9 PUFFS 4X, QD
     Dates: start: 20100722
  4. REVATIO [Concomitant]
     Active Substance: SILDENAFIL CITRATE
     Dosage: 40 MG, TID
     Route: 048
     Dates: start: 20090527
  5. COUMADIN [Concomitant]
     Active Substance: WARFARIN SODIUM
     Dosage: 4.5 MG, QD
     Route: 048
  6. OPSUMIT [Suspect]
     Active Substance: MACITENTAN
     Indication: PULMONARY ARTERIAL HYPERTENSION
     Dosage: 10 MG
     Route: 048
     Dates: start: 201409
  7. REVATIO [Concomitant]
     Active Substance: SILDENAFIL CITRATE
     Dosage: 20 MG, TID
     Dates: start: 201204

REACTIONS (27)
  - Fatigue [Unknown]
  - Dyspnoea exertional [Unknown]
  - Exercise tolerance decreased [Unknown]
  - Arrhythmia [Unknown]
  - Pulmonary valve incompetence [Unknown]
  - Palpitations [Unknown]
  - Right ventricular dilatation [Unknown]
  - Diastolic dysfunction [Unknown]
  - Atrioventricular block [Recovered/Resolved]
  - Tachycardia [Unknown]
  - Cardiac murmur [Unknown]
  - Pulmonary arterial hypertension [Unknown]
  - Breath sounds abnormal [Unknown]
  - Tricuspid valve incompetence [Unknown]
  - Systolic dysfunction [Unknown]
  - Cardioversion [Unknown]
  - Pericardial effusion [Unknown]
  - Pain in extremity [Unknown]
  - Nausea [Unknown]
  - Condition aggravated [Unknown]
  - Pulmonary artery dilatation [Unknown]
  - Atrial flutter [Recovered/Resolved]
  - Dyspnoea [Unknown]
  - Right ventricular dysfunction [Unknown]
  - Capillary nail refill test abnormal [Unknown]
  - Electrocardiogram repolarisation abnormality [Unknown]
  - Right ventricular hypertrophy [Unknown]

NARRATIVE: CASE EVENT DATE: 20171011
